FAERS Safety Report 6504075-5 (Version None)
Quarter: 2009Q4

REPORT INFORMATION
  Report Type: 
  Country: None (occurrence: None)
  Receive Date: 20091217
  Receipt Date: 20091207
  Transmission Date: 20100525
  Serious: Yes (Hospitalization)
  Sender: FDA-Public Use
  Company Number: JP-PFIZER INC-2009308718

PATIENT
  Age: 67 Year
  Sex: Female

DRUGS (29)
  1. MIGLITOL [Suspect]
     Indication: DIABETES MELLITUS
     Dosage: UNK MG, UNK
     Route: 048
     Dates: start: 20090419, end: 20090518
  2. NORVASC [Suspect]
     Indication: HYPERTENSION
     Dosage: UNK MG, UNK
     Route: 048
     Dates: start: 20090419, end: 20090518
  3. ALDACTONE [Suspect]
     Indication: HYPERTENSION
     Dosage: UNK MG, UNK
     Route: 048
     Dates: start: 20090417, end: 20090518
  4. PLAVIX [Suspect]
     Indication: ANGINA PECTORIS
     Dosage: UNK MG, UNK
     Route: 048
     Dates: start: 20090417, end: 20090518
  5. ASPIRIN [Suspect]
     Indication: ANGINA PECTORIS
     Dosage: UNK MG, UNK
     Route: 048
     Dates: start: 20090415
  6. AMARYL [Suspect]
     Indication: DIABETES MELLITUS
     Dosage: UNK MG, UNK
     Route: 048
     Dates: start: 20090422, end: 20090518
  7. TAKEPRON [Suspect]
     Indication: GASTRITIS PROPHYLAXIS
     Dosage: UNK MG, UNK
     Route: 048
     Dates: start: 20090415, end: 20090514
  8. MICARDIS [Suspect]
     Indication: HYPERTENSION
     Dosage: UNK MG, UNK
     Route: 048
     Dates: start: 20090415, end: 20090517
  9. COVERSYL [Suspect]
     Indication: HYPERTENSION
     Dosage: UNK MG, UNK
     Route: 048
     Dates: start: 20090416, end: 20090518
  10. CRESTOR [Suspect]
     Indication: HYPERCHOLESTEROLAEMIA
     Dosage: UNK MG, UNK
     Route: 048
     Dates: start: 20090415, end: 20090514
  11. SIGMART [Suspect]
     Indication: HYPERTENSION
     Dosage: UNK MG, UNK
     Route: 048
     Dates: start: 20090416, end: 20090518
  12. ARTIST [Suspect]
     Indication: HYPERTENSION
     Dosage: UNK MG, UNK
     Route: 048
     Dates: start: 20090419, end: 20090518
  13. VEEN-F [Concomitant]
  14. HEPARIN SODIUM [Concomitant]
  15. PANALDINE [Concomitant]
  16. PARIET [Concomitant]
  17. VOGLIBOSE [Concomitant]
  18. NU LOTAN [Concomitant]
  19. ADALAT CC [Concomitant]
  20. PURSENNID [Concomitant]
  21. MAGNESIUM OXIDE [Concomitant]
  22. SULPERAZON [Concomitant]
  23. ISOTONIC SOLUTIONS [Concomitant]
  24. CEFDINIR [Concomitant]
  25. NITROGLYCERIN [Concomitant]
  26. ATROPINE [Concomitant]
  27. PRIMPERAN TAB [Concomitant]
  28. XYLOCAINE [Concomitant]
  29. IOPAMIDOL [Concomitant]

REACTIONS (2)
  - HEPATOCELLULAR INJURY [None]
  - LIVER FUNCTION TEST ABNORMAL [None]
